FAERS Safety Report 4543807-2 (Version None)
Quarter: 2004Q4

REPORT INFORMATION
  Report Type: 
  Country: None (occurrence: None)
  Receive Date: 20041229
  Receipt Date: 20041229
  Transmission Date: 20050328
  Serious: No
  Sender: FDA-Public Use
  Company Number: None

PATIENT
  Age: 91 Year
  Sex: Female

DRUGS (1)
  1. BEXTRA [Suspect]

REACTIONS (2)
  - COLONIC HAEMORRHAGE [None]
  - MUCOSAL HAEMORRHAGE [None]
